FAERS Safety Report 5887404-5 (Version None)
Quarter: 2008Q3

REPORT INFORMATION
  Report Type: 
  Country: None (occurrence: None)
  Receive Date: 20080918
  Receipt Date: 20080911
  Transmission Date: 20090109
  Serious: Yes (Disabling, Other)
  Sender: FDA-Public Use
  Company Number: US-ALLERGAN-0805472US

PATIENT
  Sex: Female
  Weight: 39.909 kg

DRUGS (17)
  1. BOTOX [Suspect]
     Indication: MUSCLE SPASTICITY
     Dosage: UNK, SINGLE
     Route: 030
     Dates: start: 20000209, end: 20000209
  2. BOTOX [Suspect]
     Indication: CEREBRAL PALSY
     Dosage: UNK, SINGLE
     Route: 030
     Dates: start: 20000630, end: 20000630
  3. BOTOX [Suspect]
     Dosage: EVERY 3-4 MONTHS
     Route: 030
  4. BOTOX [Suspect]
     Dosage: EVERY 3 MONTHS
     Route: 030
     Dates: start: 20040101
  5. BOTOX [Suspect]
     Dosage: 600 UNITS, SINGLE
     Route: 030
     Dates: start: 20060712, end: 20060712
  6. BOTOX [Suspect]
     Dosage: 600 UNITS, SINGLE
     Route: 030
     Dates: start: 20061031, end: 20061031
  7. BOTOX [Suspect]
     Dosage: 600 UNITS, SINGLE
     Route: 030
     Dates: start: 20070131, end: 20070131
  8. BOTOX [Suspect]
     Dosage: 600 UNITS, SINGLE
     Route: 030
     Dates: start: 20070525, end: 20070525
  9. BOTOX [Suspect]
     Dosage: 600 UNITS, SINGLE
     Route: 030
     Dates: start: 20070904, end: 20070904
  10. BOTOX [Suspect]
     Dosage: 600 UNITS, SINGLE
     Route: 030
     Dates: start: 20071219, end: 20071219
  11. ZANAFLEX [Suspect]
     Indication: MOVEMENT DISORDER
  12. CELEXA [Concomitant]
     Indication: DEPRESSION
     Dosage: 40 MG, QD
     Route: 048
  13. CELEXA [Concomitant]
     Indication: ANXIETY
  14. TRILEPTAL [Concomitant]
     Indication: IMPULSE-CONTROL DISORDER
     Dosage: 150 MG, TID
     Route: 048
  15. TRILEPTAL [Concomitant]
     Indication: ANXIETY
  16. SINEMET [Concomitant]
     Indication: MOVEMENT DISORDER
     Dosage: 25/100 MG TID
     Route: 048
  17. XANAX [Concomitant]
     Indication: ANXIETY

REACTIONS (16)
  - ACTIVITIES OF DAILY LIVING IMPAIRED [None]
  - ANXIETY [None]
  - CHEST DISCOMFORT [None]
  - COUGH [None]
  - DYSPHAGIA [None]
  - DYSPNOEA [None]
  - EYELID PTOSIS [None]
  - FALL [None]
  - FATIGUE [None]
  - HEADACHE [None]
  - MEDICATION ERROR [None]
  - MONONUCLEOSIS SYNDROME [None]
  - MUSCULAR WEAKNESS [None]
  - PAIN IN EXTREMITY [None]
  - RETCHING [None]
  - SPEECH DISORDER [None]
